FAERS Safety Report 12126787 (Version 2)
Quarter: 2016Q1

REPORT INFORMATION
  Report Type: Spontaneous
  Country: ZA (occurrence: ZA)
  Receive Date: 20160229
  Receipt Date: 20160307
  Transmission Date: 20160526
  Serious: Yes (Other)
  Sender: FDA-Public Use
  Company Number: ZA-BAYER-2016-037272

PATIENT
  Sex: Female

DRUGS (2)
  1. XARELTO [Suspect]
     Active Substance: RIVAROXABAN
     Dosage: 15 MG, BID
     Route: 048
  2. AVELON [Suspect]
     Active Substance: MOXIFLOXACIN HYDROCHLORIDE
     Dosage: UNK
     Route: 048

REACTIONS (10)
  - Diarrhoea [None]
  - Heart rate irregular [None]
  - Arthralgia [None]
  - Tendonitis [None]
  - Dyspepsia [None]
  - Productive cough [None]
  - Cerebrovascular accident [None]
  - Headache [Not Recovered/Not Resolved]
  - Myalgia [None]
  - Dizziness [None]
